FAERS Safety Report 22182767 (Version 1)
Quarter: 2023Q2

REPORT INFORMATION
  Report Type: Spontaneous
  Country: GB (occurrence: None)
  Receive Date: 20230406
  Receipt Date: 20230406
  Transmission Date: 20230721
  Serious: Yes (Other)
  Sender: FDA-Public Use
  Company Number: 2023A080686

PATIENT
  Age: 14 Year
  Sex: Male
  Weight: 52 kg

DRUGS (5)
  1. OMEPRAZOLE [Suspect]
     Active Substance: OMEPRAZOLE
     Indication: Gastric disorder
     Route: 048
     Dates: start: 20221004
  2. PREDNISOLONE [Suspect]
     Active Substance: PREDNISOLONE
     Dosage: UP TO 60MG
     Route: 048
     Dates: start: 20221004
  3. BENZOYL PEROXIDE [Concomitant]
     Active Substance: BENZOYL PEROXIDE
     Dates: start: 20221101
  4. METHYLPREDNISOLONE [Concomitant]
     Active Substance: METHYLPREDNISOLONE
     Dates: start: 20221004, end: 20221009
  5. NIZORAL [Concomitant]
     Active Substance: KETOCONAZOLE
     Dates: start: 20221101

REACTIONS (1)
  - Dystonia [Recovered/Resolved]

NARRATIVE: CASE EVENT DATE: 20221019
